FAERS Safety Report 19862355 (Version 3)
Quarter: 2021Q4

REPORT INFORMATION
  Report Type: Spontaneous
  Country: FR (occurrence: FR)
  Receive Date: 20210921
  Receipt Date: 20211001
  Transmission Date: 20220303
  Serious: Yes (Death, Hospitalization)
  Sender: FDA-Public Use
  Company Number: FR-BAYER-2021A214376

PATIENT
  Age: 72 Year
  Sex: Female
  Weight: 55 kg

DRUGS (2)
  1. ADEMPAS [Suspect]
     Active Substance: RIOCIGUAT
     Dosage: 2.5 MG, TID
     Route: 048
  2. FLUINDIONE [Concomitant]
     Active Substance: FLUINDIONE

REACTIONS (7)
  - Death [Fatal]
  - Head injury [None]
  - Loss of consciousness [None]
  - Head injury [None]
  - Unresponsive to stimuli [None]
  - Vomiting [None]
  - Mydriasis [None]

NARRATIVE: CASE EVENT DATE: 20210501
